FAERS Safety Report 8037238-0 (Version None)
Quarter: 2011Q4

REPORT INFORMATION
  Report Type: 
  Country: None (occurrence: None)
  Receive Date: 20111202
  Receipt Date: 20091207
  Transmission Date: 20120403
  Serious: Yes (Hospitalization)
  Sender: FDA-Public Use
  Company Number: 2009SP040685

PATIENT
  Age: 18 Year
  Sex: Female
  Weight: 43.9989 kg

DRUGS (6)
  1. ADVAIR DISKUS 100/50 [Concomitant]
  2. SINGULAIR [Concomitant]
  3. NUVARING [Suspect]
     Indication: CONTRACEPTION
     Dates: start: 20061101, end: 20080101
  4. FLEXERIL [Concomitant]
  5. ALBUTEROL [Concomitant]
  6. ULTRAM [Concomitant]

REACTIONS (3)
  - DEEP VEIN THROMBOSIS [None]
  - MIGRAINE [None]
  - FUNGAL INFECTION [None]
